FAERS Safety Report 24589202 (Version 1)
Quarter: 2024Q4

REPORT INFORMATION
  Report Type: Spontaneous
  Country: GB (occurrence: GB)
  Receive Date: 20241107
  Receipt Date: 20241107
  Transmission Date: 20250114
  Serious: Yes (Hospitalization)
  Sender: ELI LILLY AND COMPANY
  Company Number: GB-ELI_LILLY_AND_COMPANY-GB202410018867

PATIENT
  Age: 66 Year
  Sex: Male

DRUGS (1)
  1. MOUNJARO [Suspect]
     Active Substance: TIRZEPATIDE
     Indication: Product used for unknown indication
     Dosage: 2.5 MG, WEEKLY (1/W)
     Route: 058
     Dates: start: 20240704

REACTIONS (9)
  - Cholangiocarcinoma [Unknown]
  - Chromaturia [Unknown]
  - Faeces discoloured [Unknown]
  - Weight decreased [Unknown]
  - Pruritus [Unknown]
  - Sleep disorder due to general medical condition, insomnia type [Unknown]
  - Jaundice [Unknown]
  - Underdose [Unknown]
  - Off label use [Unknown]

NARRATIVE: CASE EVENT DATE: 20240704
